FAERS Safety Report 23721068 (Version 4)
Quarter: 2024Q2

REPORT INFORMATION
  Report Type: Spontaneous
  Country: JP (occurrence: JP)
  Receive Date: 20240409
  Receipt Date: 20240501
  Transmission Date: 20240716
  Serious: Yes (Other)
  Sender: FDA-Public Use
  Company Number: JP-GSKNCCC-Case-01949009_AE-82020

PATIENT

DRUGS (1)
  1. VALTREX [Suspect]
     Active Substance: VALACYCLOVIR HYDROCHLORIDE
     Indication: Varicella
     Dosage: 625 MG, TID
     Dates: start: 20240404, end: 20240409

REACTIONS (3)
  - Loss of consciousness [Unknown]
  - Balance disorder [Unknown]
  - Lip discolouration [Unknown]

NARRATIVE: CASE EVENT DATE: 20240404
